FAERS Safety Report 15752127 (Version 1)
Quarter: 2018Q4

REPORT INFORMATION
  Report Type: Spontaneous
  Country: US (occurrence: US)
  Receive Date: 20181221
  Receipt Date: 20181221
  Transmission Date: 20190205
  Serious: Yes (Hospitalization)
  Sender: FDA-Public Use
  Company Number: US-PFIZER INC-2018485826

PATIENT
  Age: 32 Year
  Sex: Male
  Weight: 107 kg

DRUGS (1)
  1. ANBESOL MAXIMUM STRENGTH [Suspect]
     Active Substance: BENZOCAINE
     Indication: PAIN
     Dosage: ABOUT ONE DROP LITTLE SMALL LITTLE DROP, SINGLE
     Dates: start: 2018, end: 2018

REACTIONS (6)
  - Vomiting [Recovered/Resolved]
  - Retching [Recovered/Resolved]
  - Decreased appetite [Recovered/Resolved]
  - Swelling [Recovered/Resolved]
  - Nausea [Recovered/Resolved]
  - Drug hypersensitivity [Recovered/Resolved]

NARRATIVE: CASE EVENT DATE: 2018
